FAERS Safety Report 20080401 (Version 1)
Quarter: 2021Q4

REPORT INFORMATION
  Report Type: Spontaneous
  Country: US (occurrence: None)
  Receive Date: 20211116
  Receipt Date: 20211116
  Transmission Date: 20220303
  Serious: No
  Sender: FDA-Public Use
  Company Number: None

PATIENT
  Age: 83 Year
  Sex: Female
  Weight: 50.85 kg

DRUGS (13)
  1. EVEROLIMUS [Suspect]
     Active Substance: EVEROLIMUS
     Indication: Breast cancer
     Dosage: FREQUENCY : DAILY;?
     Route: 048
     Dates: start: 20211025
  2. Vitamin B12 50mcg [Concomitant]
  3. Vitamin D 2000IU [Concomitant]
  4. LIPITOR [Concomitant]
     Active Substance: ATORVASTATIN CALCIUM
  5. LISINOPRIL [Concomitant]
     Active Substance: LISINOPRIL
  6. Magnesium gluconate 30mg [Concomitant]
  7. Nasal Mist 0.9% [Concomitant]
  8. Nexium 20mg [Concomitant]
  9. VITAMINS [Concomitant]
     Active Substance: VITAMINS
  10. Vitamin C 500mg [Concomitant]
  11. Biotin 1000mcg [Concomitant]
  12. EXEMESTANE [Concomitant]
     Active Substance: EXEMESTANE
  13. DEXAMETHASONE [Concomitant]
     Active Substance: DEXAMETHASONE

REACTIONS (3)
  - Neck pain [None]
  - Throat irritation [None]
  - Fatigue [None]

NARRATIVE: CASE EVENT DATE: 20211116
